FAERS Safety Report 5428680-2 (Version None)
Quarter: 2007Q3

REPORT INFORMATION
  Report Type: 
  Country: None (occurrence: None)
  Receive Date: 20070828
  Receipt Date: 20070822
  Transmission Date: 20080115
  Serious: Yes (Hospitalization)
  Sender: FDA-Public Use
  Company Number: AT-SHR-AT-2007-031557

PATIENT
  Sex: Male

DRUGS (3)
  1. FLUDARABINE PHOSPHATE [Suspect]
     Dosage: 6 CYCLE,
     Route: 042
     Dates: start: 20061101
  2. CYCLOPHOSPHAMIDE [Suspect]
     Dates: start: 20061101
  3. RITUXIMAB [Suspect]
     Dates: start: 20061101

REACTIONS (1)
  - PEMPHIGUS [None]
